FAERS Safety Report 10241508 (Version 1)
Quarter: 2014Q2

REPORT INFORMATION
  Report Type: Spontaneous
  Country: JP (occurrence: JP)
  Receive Date: 20140617
  Receipt Date: 20140617
  Transmission Date: 20141212
  Serious: No
  Sender: FDA-Public Use
  Company Number: JP-ELI_LILLY_AND_COMPANY-JP201406002975

PATIENT
  Age: 72 Year
  Sex: Female

DRUGS (1)
  1. CYMBALTA [Suspect]
     Indication: BURNING MOUTH SYNDROME
     Dosage: 20 MG, QD
     Route: 048
     Dates: start: 20140414, end: 20140421

REACTIONS (2)
  - Hepatic function abnormal [Recovered/Resolved]
  - Off label use [Recovered/Resolved]
